FAERS Safety Report 5682189-X (Version None)
Quarter: 2008Q1

REPORT INFORMATION
  Report Type: 
  Country: None (occurrence: None)
  Receive Date: 20080327
  Receipt Date: 20080321
  Transmission Date: 20080703
  Serious: Yes (Death, Hospitalization)
  Sender: FDA-Public Use
  Company Number: FR-WYE-G01296208

PATIENT
  Age: 31 Year
  Sex: Female

DRUGS (1)
  1. ADVIL [Suspect]
     Indication: PYREXIA
     Dosage: UNKNOWN
     Route: 048
     Dates: start: 20071001, end: 20071001

REACTIONS (4)
  - GASTROINTESTINAL DISORDER [None]
  - PHARYNGOLARYNGEAL PAIN [None]
  - TOXIC SHOCK SYNDROME [None]
  - VIRAL INFECTION [None]
